FAERS Safety Report 4271968-1 (Version None)
Quarter: 2004Q1

REPORT INFORMATION
  Report Type: 
  Country: None (occurrence: None)
  Receive Date: 20040115
  Receipt Date: 20020501
  Transmission Date: 20041129
  Serious: Yes (Hospitalization)
  Sender: FDA-Public Use
  Company Number: US-BRISTOL-MYERS SQUIBB COMPANY-11843638

PATIENT
  Age: 65 Year
  Sex: Male

DRUGS (14)
  1. PRAVASTATIN SODIUM [Suspect]
     Dosage: MOST RECENT DOSE PRIOR TO THE EVENT WAS ON 24-SEP-2001.
     Route: 048
     Dates: start: 20010515
  2. GATIFLOXACIN [Suspect]
     Dosage: MOST RECENT = 24-SEP-2001.
     Route: 048
     Dates: start: 20010601
  3. METFORMIN HCL [Concomitant]
     Route: 048
     Dates: start: 19980820
  4. GLYBURIDE [Concomitant]
     Route: 048
     Dates: start: 20000509
  5. AVANDIA [Concomitant]
     Route: 048
     Dates: start: 20010925, end: 20010927
  6. OMEPRAZOLE [Concomitant]
     Route: 048
     Dates: start: 20010904
  7. DONEPEZIL HCL [Concomitant]
     Route: 048
     Dates: start: 20010716
  8. ATENOLOL [Concomitant]
     Route: 048
     Dates: start: 19990115
  9. LISINOPRIL [Concomitant]
     Route: 048
     Dates: start: 19960718
  10. AMLODIPINE BESYLATE [Concomitant]
     Route: 048
     Dates: start: 19960826
  11. CLOPIDOGREL BISULFATE [Concomitant]
     Route: 048
     Dates: start: 20010515
  12. ASPIRIN [Concomitant]
     Route: 048
     Dates: start: 19960718
  13. SERTRALINE HCL [Concomitant]
     Route: 048
     Dates: start: 20011004
  14. MAXZIDE [Concomitant]
     Route: 048
     Dates: start: 20011105

REACTIONS (9)
  - ATHEROSCLEROSIS [None]
  - CONFUSIONAL STATE [None]
  - COORDINATION ABNORMAL [None]
  - FEELING ABNORMAL [None]
  - FLUSHING [None]
  - HYPERTENSION [None]
  - HYPOGLYCAEMIA [None]
  - IRRITABILITY [None]
  - VISION BLURRED [None]
